FAERS Safety Report 9438900 (Version 1)
Quarter: 2013Q3

REPORT INFORMATION
  Report Type: Spontaneous
  Country: US (occurrence: US)
  Receive Date: 20130802
  Receipt Date: 20130802
  Transmission Date: 20140515
  Serious: Yes (Other)
  Sender: FDA-Public Use
  Company Number: US-ABBOTT-13P-163-1127589-00

PATIENT
  Sex: 0

DRUGS (4)
  1. HUMIRA [Suspect]
     Indication: INFLAMMATORY BOWEL DISEASE
  2. HUMIRA [Suspect]
     Indication: CROHN^S DISEASE
  3. HUMIRA [Suspect]
     Indication: COLITIS
  4. REMICADE [Suspect]

REACTIONS (2)
  - Hunger [Unknown]
  - Colectomy [Unknown]
